FAERS Safety Report 8130186-7 (Version None)
Quarter: 2012Q1

REPORT INFORMATION
  Report Type: 
  Country: None (occurrence: None)
  Receive Date: 20120210
  Receipt Date: 20120131
  Transmission Date: 20120608
  Serious: Yes (Other)
  Sender: FDA-Public Use
  Company Number: PHFR2011GB05828

PATIENT
  Sex: Female

DRUGS (4)
  1. CLOZARIL [Suspect]
     Indication: SCHIZOPHRENIA
     Dosage: 400 MG, DAILY
     Route: 048
     Dates: start: 20100701, end: 20111001
  2. CLONAZEPAM [Concomitant]
     Indication: ANXIETY
     Dosage: 0.5 MG, DAILY
     Route: 048
     Dates: start: 20090101
  3. TOPIRAMATE [Concomitant]
  4. VENLAFAXINE [Concomitant]
     Indication: DEPRESSION
     Dosage: 225 MG, DAILY
     Route: 048
     Dates: start: 20090101

REACTIONS (4)
  - INCONTINENCE [None]
  - DYSPNOEA [None]
  - MOBILITY DECREASED [None]
  - WEIGHT INCREASED [None]
